FAERS Safety Report 23147703 (Version 1)
Quarter: 2023Q4

REPORT INFORMATION
  Report Type: Spontaneous
  Country: US (occurrence: US)
  Receive Date: 20231106
  Receipt Date: 20231106
  Transmission Date: 20240110
  Serious: No
  Sender: FDA-Public Use
  Company Number: US-UROGEN PHARMA LTD.-2023-UGN-000074

PATIENT

DRUGS (4)
  1. JELMYTO [Suspect]
     Active Substance: MITOMYCIN
     Indication: Transitional cell cancer of the renal pelvis and ureter
     Dosage: 13 MILLILITER, ONCE A WEEK
     Dates: start: 20230824, end: 20230824
  2. JELMYTO [Suspect]
     Active Substance: MITOMYCIN
     Dosage: 13 MILLILITER, ONCE A WEEK
     Dates: start: 20230901, end: 20230901
  3. JELMYTO [Suspect]
     Active Substance: MITOMYCIN
     Dosage: 13 MILLILITER, ONCE A WEEK
     Dates: start: 20230908, end: 20230908
  4. JELMYTO [Suspect]
     Active Substance: MITOMYCIN
     Dosage: 13 MILLILITER, ONCE A WEEK
     Dates: start: 20230915, end: 20230915

REACTIONS (1)
  - Rash vesicular [Recovered/Resolved]

NARRATIVE: CASE EVENT DATE: 20230909
